FAERS Safety Report 16623707 (Version 8)
Quarter: 2024Q4

REPORT INFORMATION
  Report Type: Spontaneous
  Country: US (occurrence: US)
  Receive Date: 20190724
  Receipt Date: 20241003
  Transmission Date: 20250115
  Serious: Yes (Other)
  Sender: GILEAD
  Company Number: US-GILEAD-2019-0419555

PATIENT
  Age: 56 Year
  Sex: Male
  Weight: 57.2 kg

DRUGS (22)
  1. ATRIPLA [Suspect]
     Active Substance: EFAVIRENZ\EMTRICITABINE\TENOFOVIR DISOPROXIL FUMARATE
     Indication: HIV infection
     Dosage: UNK
     Route: 048
     Dates: start: 2006, end: 2018
  2. ATRIPLA [Suspect]
     Active Substance: EFAVIRENZ\EMTRICITABINE\TENOFOVIR DISOPROXIL FUMARATE
     Dosage: UNK
     Route: 048
     Dates: start: 2012, end: 2018
  3. ATRIPLA [Suspect]
     Active Substance: EFAVIRENZ\EMTRICITABINE\TENOFOVIR DISOPROXIL FUMARATE
     Dosage: UNK
     Route: 048
     Dates: start: 2006, end: 2014
  4. ATRIPLA [Suspect]
     Active Substance: EFAVIRENZ\EMTRICITABINE\TENOFOVIR DISOPROXIL FUMARATE
     Dosage: UNK
     Route: 048
     Dates: start: 20080703, end: 20140630
  5. ATRIPLA [Suspect]
     Active Substance: EFAVIRENZ\EMTRICITABINE\TENOFOVIR DISOPROXIL FUMARATE
     Dosage: UNK
     Route: 048
     Dates: start: 20091026, end: 20091231
  6. DESCOVY [Concomitant]
     Active Substance: EMTRICITABINE\TENOFOVIR ALAFENAMIDE FUMARATE
     Dosage: UNK
  7. EPIVIR [Concomitant]
     Active Substance: LAMIVUDINE
  8. ZIAGEN [Concomitant]
     Active Substance: ABACAVIR SULFATE
  9. ACYCLOVIR [Concomitant]
     Active Substance: ACYCLOVIR
  10. MITOMYCIN [Concomitant]
     Active Substance: MITOMYCIN
  11. FISH OIL [Concomitant]
     Active Substance: FISH OIL
  12. ATENOLOL [Concomitant]
     Active Substance: ATENOLOL
  13. ASPIRIN COMPOUND [ACETYLSALICYLIC ACID;ASCORBIC ACID] [Concomitant]
  14. VIDEX [Concomitant]
     Active Substance: DIDANOSINE
  15. SUSTIVA [Concomitant]
     Active Substance: EFAVIRENZ
  16. LIPITOR [Concomitant]
     Active Substance: ATORVASTATIN CALCIUM
  17. XANAX [Concomitant]
     Active Substance: ALPRAZOLAM
  18. OMEPRAZOLE [Concomitant]
     Active Substance: OMEPRAZOLE
  19. FLUTICASONE [Concomitant]
     Active Substance: FLUTICASONE
  20. FLOMAX [Concomitant]
     Active Substance: TAMSULOSIN HYDROCHLORIDE
  21. BACTRIM [Concomitant]
     Active Substance: SULFAMETHOXAZOLE\TRIMETHOPRIM
  22. PLAVIX [Concomitant]
     Active Substance: CLOPIDOGREL BISULFATE

REACTIONS (24)
  - Glomerulonephritis [Unknown]
  - Chronic kidney disease [Not Recovered/Not Resolved]
  - Condition aggravated [Unknown]
  - Acute kidney injury [Not Recovered/Not Resolved]
  - Renal failure [Unknown]
  - Osteoarthritis [Not Recovered/Not Resolved]
  - Nephropathy [Unknown]
  - Renal cyst [Not Recovered/Not Resolved]
  - Emotional distress [Not Recovered/Not Resolved]
  - Anhedonia [Not Recovered/Not Resolved]
  - Economic problem [Not Recovered/Not Resolved]
  - Haematuria [Not Recovered/Not Resolved]
  - Intervertebral disc degeneration [Unknown]
  - Anxiety [Not Recovered/Not Resolved]
  - Proteinuria [Not Recovered/Not Resolved]
  - Pain [Not Recovered/Not Resolved]
  - Osteopenia [Not Recovered/Not Resolved]
  - Spinal disorder [Not Recovered/Not Resolved]
  - Pain in extremity [Not Recovered/Not Resolved]
  - Back pain [Not Recovered/Not Resolved]
  - Neck pain [Not Recovered/Not Resolved]
  - Spinal pain [Not Recovered/Not Resolved]
  - Scoliosis [Not Recovered/Not Resolved]
  - Orthostatic hypotension [Not Recovered/Not Resolved]

NARRATIVE: CASE EVENT DATE: 20120615
